FAERS Safety Report 10622093 (Version 4)
Quarter: 2015Q1

REPORT INFORMATION
  Report Type: Spontaneous
  Country: US (occurrence: US)
  Receive Date: 20141203
  Receipt Date: 20150210
  Transmission Date: 20150720
  Serious: No
  Sender: FDA-Public Use
  Company Number: US-GLAXOSMITHKLINE-A1083773A

PATIENT

DRUGS (3)
  1. XELODA [Suspect]
     Active Substance: CAPECITABINE
     Dosage: UNK, U
  2. XELODA [Suspect]
     Active Substance: CAPECITABINE
     Dosage: UNK, U
  3. TYKERB [Suspect]
     Active Substance: LAPATINIB DITOSYLATE
     Indication: BREAST CANCER METASTATIC
     Dosage: 1250 MG, U
     Route: 065
     Dates: start: 201404

REACTIONS (10)
  - Skin fissures [Unknown]
  - Dyspnoea [Unknown]
  - Diarrhoea [Unknown]
  - Disease progression [Unknown]
  - Pruritus [Unknown]
  - Skin discolouration [Unknown]
  - Cystitis [Unknown]
  - Palmar-plantar erythrodysaesthesia syndrome [Unknown]
  - Rash [Unknown]
  - Dry skin [Unknown]
